FAERS Safety Report 4269319-1 (Version None)
Quarter: 2004Q1

REPORT INFORMATION
  Report Type: 
  Country: None (occurrence: None)
  Receive Date: 20040109
  Receipt Date: 20031229
  Transmission Date: 20041129
  Serious: Yes (Hospitalization)
  Sender: FDA-Public Use
  Company Number: US-JNJFOC-20031205453

PATIENT
  Age: 56 Year
  Sex: Female
  Weight: 77.1115 kg

DRUGS (17)
  1. INFLIXIMAB (INFLIXIMAB, RECOMBINANT) LYOPHILIZED POWDER [Suspect]
     Indication: RHEUMATOID ARTHRITIS
     Dosage: INTRAVENOUS
     Route: 042
     Dates: start: 20000206
  2. METHOREXATE (METHOTREXATE) [Concomitant]
  3. PREDNISONE [Concomitant]
  4. HYDROCODONE BITARTRATE [Concomitant]
  5. ACTONEL [Concomitant]
  6. TYLENOL [Concomitant]
  7. OSCAL (CALCIUM CARBONATE) [Concomitant]
  8. LIPITOR [Concomitant]
  9. FOLIC ACID [Concomitant]
  10. ALPRAZOLAM [Concomitant]
  11. POTASSIUM (POTASSIUM) [Concomitant]
  12. FUROSEMIDE [Concomitant]
  13. GLUCOVANCE (GLIBOMET) [Concomitant]
  14. NEURONTIN [Concomitant]
  15. CARISOPRODOL [Concomitant]
  16. CLONAZEPAM [Concomitant]
  17. ALBUTEROL [Concomitant]

REACTIONS (2)
  - ASTHMA [None]
  - WHITE BLOOD CELL COUNT INCREASED [None]
